FAERS Safety Report 5226767-0 (Version None)
Quarter: 2007Q1

REPORT INFORMATION
  Report Type: 
  Country: None (occurrence: None)
  Receive Date: 20070130
  Receipt Date: 20070117
  Transmission Date: 20070707
  Serious: Yes (Hospitalization)
  Sender: FDA-Public Use
  Company Number: 151995ISR

PATIENT
  Age: 11 Year
  Sex: Female

DRUGS (1)
  1. MESALAZINE [Suspect]
     Dosage: 1500 (500 MG, 3 IN 1 D)

REACTIONS (8)
  - ANAEMIA [None]
  - COLITIS ULCERATIVE [None]
  - CONDITION AGGRAVATED [None]
  - INFLAMMATION [None]
  - LEUKOCYTURIA [None]
  - NEPHRITIS INTERSTITIAL [None]
  - NO THERAPEUTIC RESPONSE [None]
  - PROTEINURIA [None]
